FAERS Safety Report 6896689-8 (Version None)
Quarter: 2010Q3

REPORT INFORMATION
  Report Type: 
  Country: None (occurrence: None)
  Receive Date: 20100802
  Receipt Date: 20070221
  Transmission Date: 20110219
  Serious: No
  Sender: FDA-Public Use
  Company Number: US-PFIZER INC-2006145601

PATIENT
  Sex: Male
  Weight: 77.11 kg

DRUGS (12)
  1. LYRICA [Suspect]
     Indication: HYPOAESTHESIA
     Dates: start: 20061101
  2. CORTISONE ACETATE [Suspect]
     Indication: HYPOAESTHESIA
  3. VASOTEC [Concomitant]
  4. VYTORIN [Concomitant]
  5. LASIX [Concomitant]
  6. WARFARIN SODIUM [Concomitant]
  7. COREG [Concomitant]
  8. ACETYLSALICYLIC ACID SRT [Concomitant]
  9. MUCINEX [Concomitant]
     Indication: UPPER-AIRWAY COUGH SYNDROME
  10. ALL OTHER THERAPEUTIC PRODUCTS [Concomitant]
  11. OPHTHALMOLOGICALS [Concomitant]
  12. UBIDECARENONE [Concomitant]

REACTIONS (5)
  - BODY HEIGHT DECREASED [None]
  - DRUG INEFFECTIVE [None]
  - PARAESTHESIA [None]
  - SOMNOLENCE [None]
  - VISION BLURRED [None]
